FAERS Safety Report 7446297-5 (Version None)
Quarter: 2011Q2

REPORT INFORMATION
  Report Type: 
  Country: None (occurrence: None)
  Receive Date: 20110429
  Receipt Date: 20100510
  Transmission Date: 20111010
  Serious: No
  Sender: FDA-Public Use
  Company Number: US-ASTRAZENECA-2010SE21133

PATIENT
  Age: 62 Year
  Sex: Female
  Weight: 99.8 kg

DRUGS (6)
  1. LABETALOL [Concomitant]
     Indication: BLOOD PRESSURE
  2. COZAAR [Concomitant]
     Indication: BLOOD PRESSURE
  3. INSULIN [Concomitant]
  4. SYOMAX [Concomitant]
     Indication: ABDOMINAL PAIN UPPER
  5. LISINOPRIL [Concomitant]
     Indication: BLOOD PRESSURE
  6. NEXIUM [Suspect]
     Indication: PANCREATICODUODENECTOMY
     Route: 048
     Dates: start: 20100401

REACTIONS (2)
  - BLOOD PRESSURE INCREASED [None]
  - SINUS DISORDER [None]
